FAERS Safety Report 16746546 (Version 2)
Quarter: 2019Q3

REPORT INFORMATION
  Report Type: Report from Study
  Country: US (occurrence: US)
  Receive Date: 20190827
  Receipt Date: 20190830
  Transmission Date: 20191005
  Serious: Yes (Other)
  Sender: FDA-Public Use
  Company Number: US-ROCHE-2383115

PATIENT
  Sex: Female

DRUGS (7)
  1. BACLOFEN. [Concomitant]
     Active Substance: BACLOFEN
  2. MOBIC [Concomitant]
     Active Substance: MELOXICAM
  3. AMPYRA [Concomitant]
     Active Substance: DALFAMPRIDINE
  4. GABAPENTIN. [Concomitant]
     Active Substance: GABAPENTIN
  5. OCREVUS [Suspect]
     Active Substance: OCRELIZUMAB
     Indication: RELAPSING MULTIPLE SCLEROSIS
     Dosage: SECOND DOSE: 15/FEB/2019
     Route: 065
     Dates: start: 20190201
  6. ULTRAM [Concomitant]
     Active Substance: TRAMADOL HYDROCHLORIDE
  7. AMBIEN [Concomitant]
     Active Substance: ZOLPIDEM TARTRATE

REACTIONS (1)
  - Neoplasm malignant [Not Recovered/Not Resolved]
